FAERS Safety Report 5766939-X (Version None)
Quarter: 2008Q2

REPORT INFORMATION
  Report Type: 
  Country: None (occurrence: None)
  Receive Date: 20080606
  Receipt Date: 20080527
  Transmission Date: 20081010
  Serious: Yes (Hospitalization)
  Sender: FDA-Public Use
  Company Number: TCI2008A01852

PATIENT
  Age: 85 Year
  Sex: Female

DRUGS (4)
  1. ACTOS [Suspect]
     Indication: DIABETES MELLITUS
     Dosage: 15 MG (15 MG, 1 IN 1 D) PER ORAL
     Route: 048
     Dates: start: 20080315, end: 20080327
  2. AMARYL [Concomitant]
  3. GLUCOBAY [Concomitant]
  4. PERINDOPRIL ERBUMINE [Concomitant]

REACTIONS (3)
  - BLOOD PRESSURE DECREASED [None]
  - CEREBRAL ISCHAEMIA [None]
  - MUSCULAR WEAKNESS [None]
